FAERS Safety Report 24358713 (Version 4)
Quarter: 2025Q1

REPORT INFORMATION
  Report Type: Spontaneous
  Country: US (occurrence: US)
  Receive Date: 20240924
  Receipt Date: 20250319
  Transmission Date: 20250409
  Serious: No
  Sender: PFIZER
  Company Number: US-PFIZER INC-PV202400115959

PATIENT
  Age: 71 Year
  Sex: Female

DRUGS (1)
  1. TUKYSA [Suspect]
     Active Substance: TUCATINIB
     Dosage: 50 MG FIVE TABLETS, TWICE A DAY

REACTIONS (2)
  - Localised infection [Unknown]
  - Photosensitivity reaction [Unknown]
